FAERS Safety Report 4545156-5 (Version None)
Quarter: 2005Q1

REPORT INFORMATION
  Report Type: 
  Country: None (occurrence: None)
  Receive Date: 20050103
  Receipt Date: 20050103
  Transmission Date: 20050727
  Serious: Yes (Hospitalization)
  Sender: FDA-Public Use
  Company Number: None

PATIENT
  Sex: Female
  Weight: 73.9363 kg

DRUGS (4)
  1. PROCRIT [Suspect]
     Indication: ANAEMIA
     Dosage: 40, 000 U SQ WKLY, 60, 000 U SQ WKLY
     Route: 058
     Dates: start: 20040525, end: 20040706
  2. PROCRIT [Suspect]
     Indication: CHEMOTHERAPY
     Dosage: 40, 000 U SQ WKLY, 60, 000 U SQ WKLY
     Route: 058
     Dates: start: 20040525, end: 20040706
  3. PROCRIT [Suspect]
     Indication: ANAEMIA
     Dosage: 40, 000 U SQ WKLY, 60, 000 U SQ WKLY
     Route: 058
     Dates: start: 20040713, end: 20040928
  4. PROCRIT [Suspect]
     Indication: CHEMOTHERAPY
     Dosage: 40, 000 U SQ WKLY, 60, 000 U SQ WKLY
     Route: 058
     Dates: start: 20040713, end: 20040928

REACTIONS (1)
  - DEEP VEIN THROMBOSIS [None]
